FAERS Safety Report 12638279 (Version 3)
Quarter: 2019Q4

REPORT INFORMATION
  Report Type: Spontaneous
  Country: US (occurrence: US)
  Receive Date: 20160809
  Receipt Date: 20191015
  Transmission Date: 20200122
  Serious: No
  Sender: FDA-Public Use
  Company Number: US-SA-2016SA089011

PATIENT
  Age: 59 Year
  Sex: Male

DRUGS (2)
  1. PRALUENT [Suspect]
     Active Substance: ALIROCUMAB
     Dosage: 75 MG,QOW
  2. PRALUENT [Suspect]
     Active Substance: ALIROCUMAB
     Indication: BLOOD CHOLESTEROL INCREASED
     Dosage: 75 MG,QOW
     Route: 058
     Dates: start: 20160201, end: 20160509

REACTIONS (7)
  - Burning sensation [Not Recovered/Not Resolved]
  - Injection site pruritus [Recovered/Resolved]
  - Arthralgia [Recovered/Resolved]
  - Injection site erythema [Recovering/Resolving]
  - Injection site pain [Not Recovered/Not Resolved]
  - Injection site rash [Recovered/Resolved]
  - Influenza like illness [Recovered/Resolved]

NARRATIVE: CASE EVENT DATE: 20160425
